FAERS Safety Report 5775503-8 (Version None)
Quarter: 2008Q2

REPORT INFORMATION
  Report Type: 
  Country: None (occurrence: None)
  Receive Date: 20080612
  Receipt Date: 20080523
  Transmission Date: 20081010
  Serious: Yes (Life-Threatening, Hospitalization, Other)
  Sender: FDA-Public Use
  Company Number: GB-DEXPHARM-20080525

PATIENT
  Age: 39 Year
  Sex: Female

DRUGS (4)
  1. DICLOFENAC SODIUM [Suspect]
  2. PLAVIX [Suspect]
     Dosage: 75 MG MILLIGRAM(S) ORAL
     Route: 048
  3. ASPIRIN [Concomitant]
  4. DICLOFENAC SODIUM [Concomitant]

REACTIONS (4)
  - CHEST PAIN [None]
  - LOSS OF CONSCIOUSNESS [None]
  - PERICARDIAL EFFUSION [None]
  - PERICARDIAL HAEMORRHAGE [None]
